FAERS Safety Report 9346836 (Version 3)
Quarter: 2014Q3

REPORT INFORMATION
  Report Type: Report from Study
  Country: JP (occurrence: JP)
  Receive Date: 20130613
  Receipt Date: 20140708
  Transmission Date: 20150326
  Serious: Yes (Other)
  Sender: FDA-Public Use
  Company Number: JP-009507513-1305JPN006074

PATIENT
  Age: 33 Year
  Sex: Female
  Weight: 50 kg

DRUGS (13)
  1. GONADOTROPIN, CHORIONIC [Concomitant]
     Active Substance: CHORIOGONADOTROPIN ALFA
     Indication: OVULATION INDUCTION
     Dosage: 10000 (UNDER 1000UNIT), QD
     Route: 051
     Dates: start: 20100620, end: 20100620
  2. ESTRANA [Concomitant]
     Indication: IN VITRO FERTILISATION
     Dosage: 2-4 PIECES/DAY, DAILY DOSE UNKNOWN, FORMULATION: TAP
     Route: 062
     Dates: start: 20100908, end: 20101003
  3. VITAMIN E ACETATE [Concomitant]
     Active Substance: .ALPHA.-TOCOPHEROL ACETATE
     Indication: IN VITRO FERTILISATION
     Dosage: 50 MG, TID
     Route: 048
     Dates: start: 20100828, end: 20101003
  4. PROGESTERONE. [Concomitant]
     Active Substance: PROGESTERONE
     Indication: IN VITRO FERTILISATION
     Dosage: 400 MG, QD, FORMULATION: EXT
     Route: 067
     Dates: start: 20100908, end: 20101003
  5. LUTORAL (CHLORMADINONE ACETATE) [Concomitant]
     Active Substance: CHLORMADINONE ACETATE\MESTRANOL
     Indication: IN VITRO FERTILISATION
     Dosage: 2 MG, TID
     Route: 048
     Dates: start: 20100828, end: 20101003
  6. GANIRELIX ACETATE. [Suspect]
     Active Substance: GANIRELIX ACETATE
     Indication: PREVENTION OF PREMATURE OVULATION
     Dosage: 0.25 MG, QD
     Route: 058
     Dates: start: 20100618, end: 20100619
  7. FOLLISTIM [Concomitant]
     Active Substance: FOLLITROPIN
     Indication: IN VITRO FERTILISATION
     Dosage: 300 (UNDER 1000 UNIT), QD
     Route: 058
     Dates: start: 20100613, end: 20100613
  8. BAYASPIRIN [Concomitant]
     Active Substance: ASPIRIN
     Indication: IN VITRO FERTILISATION
     Dosage: 100 MG, QD
     Route: 048
     Dates: start: 20100908, end: 20100929
  9. FOLLISTIM [Concomitant]
     Active Substance: FOLLITROPIN
     Dosage: 225 (UNDER 1000 UNIT), QD
     Route: 058
     Dates: start: 20100614, end: 20100614
  10. FOLLISTIM [Concomitant]
     Active Substance: FOLLITROPIN
     Dosage: 150 (UNDER 1000UNIT), QD
     Route: 058
     Dates: start: 20100615, end: 20100617
  11. FOLLISTIM [Concomitant]
     Active Substance: FOLLITROPIN
     Dosage: 225 (UNDER 1000UNIT), QD
     Route: 058
     Dates: start: 20100618, end: 20100619
  12. DACTIL [Concomitant]
     Indication: IN VITRO FERTILISATION
     Dosage: 50 MG, TID
     Route: 048
     Dates: start: 20100828, end: 20101003
  13. PROGE DEPOT [Concomitant]
     Indication: IN VITRO FERTILISATION
     Dosage: 125 MG, QD
     Route: 030
     Dates: start: 20100921, end: 20100921

REACTIONS (1)
  - Abortion [Recovered/Resolved]

NARRATIVE: CASE EVENT DATE: 20101004
